FAERS Safety Report 19134716 (Version 1)
Quarter: 2021Q2

REPORT INFORMATION
  Report Type: Report from Study
  Country: CA (occurrence: CA)
  Receive Date: 20210414
  Receipt Date: 20210414
  Transmission Date: 20210717
  Serious: Yes (Death)
  Sender: FDA-Public Use
  Company Number: CA-PFIZER INC-2021364829

PATIENT
  Sex: Male

DRUGS (27)
  1. METHYLPREDNISOLONE SODIUM SUCCINATE. [Concomitant]
     Active Substance: METHYLPREDNISOLONE SODIUM SUCCINATE
     Indication: PREMEDICATION
     Dosage: 100 MG
     Route: 042
  2. PANTOPRAZOLE [Concomitant]
     Active Substance: PANTOPRAZOLE
     Dosage: 40 MG, 1X/DAY
     Route: 048
  3. ALLOPURINOL. [Concomitant]
     Active Substance: ALLOPURINOL
     Indication: BLOOD URIC ACID
     Dosage: 200 MG, 1X/DAY
     Route: 048
  4. CITALOPRAM [Concomitant]
     Active Substance: CITALOPRAM HYDROBROMIDE
     Indication: ANXIETY
     Dosage: 20 MG, 1X/DAY
     Route: 048
  5. CLONAZEPAM. [Concomitant]
     Active Substance: CLONAZEPAM
     Indication: ANXIETY
     Dosage: 1 MG, 1X/DAY
     Route: 048
  6. ZAROXOLYN [Concomitant]
     Active Substance: METOLAZONE
     Dosage: 2.5 MG, 1X/DAY
     Route: 048
  7. BENADRYL [Concomitant]
     Active Substance: DIPHENHYDRAMINE HYDROCHLORIDE
     Indication: PREMEDICATION
     Dosage: 50 MG
     Route: 048
  8. PREDNISONE. [Concomitant]
     Active Substance: PREDNISONE
     Dosage: 5 MG, 1X/DAY
     Route: 048
  9. METHYLPREDNISOLONE SODIUM SUCCINATE. [Concomitant]
     Active Substance: METHYLPREDNISOLONE SODIUM SUCCINATE
     Dosage: 125 MG
     Route: 042
  10. RITUXIMAB. [Suspect]
     Active Substance: RITUXIMAB
     Indication: GRANULOMATOSIS WITH POLYANGIITIS
     Dosage: 1000 MG, 1 EVERY 15 DAYS
     Route: 042
  11. BISOPROLOL [Concomitant]
     Active Substance: BISOPROLOL
     Indication: BLOOD PRESSURE MEASUREMENT
     Dosage: 5 MG, 1X/DAY
     Route: 048
  12. HYDROMORPHONE [Concomitant]
     Active Substance: HYDROMORPHONE
     Dosage: 1 MG, 4X/DAY
     Route: 048
  13. INSULIN [INSULIN HUMAN] [Concomitant]
     Dosage: 20 IU, 4X/DAY
     Route: 058
  14. LANTHANUM CARBONATE. [Concomitant]
     Active Substance: LANTHANUM CARBONATE
     Dosage: 1000 MG, 3X/DAY
     Route: 048
  15. TIAZAC XC [Concomitant]
     Active Substance: DILTIAZEM HYDROCHLORIDE
     Indication: BLOOD PRESSURE MEASUREMENT
     Dosage: 120 MG, 1X/DAY
     Route: 048
  16. TYLENOL [Concomitant]
     Active Substance: ACETAMINOPHEN
     Indication: PREMEDICATION
     Dosage: 650 MG
     Route: 048
  17. RITUXIMAB. [Suspect]
     Active Substance: RITUXIMAB
     Indication: GRANULOMATOSIS WITH POLYANGIITIS
     Dosage: 1000 MG
     Route: 042
  18. RITUXIMAB. [Suspect]
     Active Substance: RITUXIMAB
     Dosage: 1000 MG
     Route: 042
  19. RITUXIMAB. [Suspect]
     Active Substance: RITUXIMAB
     Dosage: UNK
     Route: 042
  20. QUETIAPINE. [Concomitant]
     Active Substance: QUETIAPINE
     Indication: ANXIETY
     Dosage: 25 MG, 1X/DAY
     Route: 048
  21. SYNTHROID [Concomitant]
     Active Substance: LEVOTHYROXINE SODIUM
     Dosage: 150 MG, 1X/DAY
     Route: 048
  22. ACETAMINOPHEN. [Concomitant]
     Active Substance: ACETAMINOPHEN
     Dosage: 1000 MG, 3X/DAY
     Route: 048
  23. ARANESP [Concomitant]
     Active Substance: DARBEPOETIN ALFA
     Dosage: 0.5 ML, 1 EVERY 5 DAYS
     Route: 058
  24. ATORVASTATIN [Concomitant]
     Active Substance: ATORVASTATIN
     Indication: BLOOD CHOLESTEROL
     Dosage: 10 MG, 1X/DAY
     Route: 048
  25. FUROSEMIDE. [Concomitant]
     Active Substance: FUROSEMIDE
     Indication: BLOOD PRESSURE MEASUREMENT
     Dosage: 80 MG, 2X/DAY
     Route: 048
  26. INSULIN ISOPHANE, HUMAN BIOSYNTHETIC [Concomitant]
     Active Substance: INSULIN HUMAN
     Indication: DIABETES MELLITUS
     Dosage: UNK, 1X/DAY
     Route: 058
  27. ONE ALPHA [Concomitant]
     Active Substance: ALFACALCIDOL
     Dosage: 1 MG, 4 EVERY 1 WEEK
     Route: 048

REACTIONS (1)
  - Death [Fatal]
